FAERS Safety Report 20896298 (Version 1)
Quarter: 2022Q2

REPORT INFORMATION
  Report Type: Report from Study
  Country: IT (occurrence: IT)
  Receive Date: 20220531
  Receipt Date: 20220531
  Transmission Date: 20220721
  Serious: Yes (Other)
  Sender: FDA-Public Use
  Company Number: None

PATIENT
  Age: 82 Year
  Sex: Female

DRUGS (8)
  1. XANAX [Suspect]
     Active Substance: ALPRAZOLAM
     Indication: Palliative care
     Dosage: 0.25 MG, 1X/DAY
     Route: 048
     Dates: start: 20220101, end: 20220329
  2. FENTANYL [Suspect]
     Active Substance: FENTANYL
     Indication: Pain
     Dosage: 75 UG, 1X/DAY
     Route: 062
     Dates: start: 20220101, end: 20220329
  3. SERTRALINE [Concomitant]
     Active Substance: SERTRALINE HYDROCHLORIDE
     Indication: Palliative care
     Dosage: 60 MG
     Route: 049
     Dates: start: 20210101
  4. FLUTICASONE FUROATE\VILANTEROL TRIFENATATE [Concomitant]
     Active Substance: FLUTICASONE FUROATE\VILANTEROL TRIFENATATE
     Indication: Chronic obstructive pulmonary disease
     Dosage: 1 DF
     Dates: start: 20210101
  5. BISOPROLOL FUMARATE [Concomitant]
     Active Substance: BISOPROLOL FUMARATE
     Indication: Hypertension
     Dosage: 2.5 MG
     Route: 048
     Dates: start: 20210101
  6. LEVOTHYROXINE SODIUM [Concomitant]
     Active Substance: LEVOTHYROXINE SODIUM
     Indication: Hypothyroidism
     Dosage: 1 DF
     Route: 048
     Dates: start: 20210101
  7. DEXAMETHASONE [Concomitant]
     Active Substance: DEXAMETHASONE
     Indication: Palliative care
     Dosage: 8 MG
     Route: 048
     Dates: start: 20210101
  8. PREGABALIN [Concomitant]
     Active Substance: PREGABALIN
     Indication: Neuralgia
     Dosage: 150 MG
     Route: 048
     Dates: start: 20210101

REACTIONS (7)
  - Toxicity to various agents [Unknown]
  - Withdrawal syndrome [Unknown]
  - Sopor [Unknown]
  - Insomnia [Unknown]
  - Hyperhidrosis [Unknown]
  - Nausea [Unknown]
  - Agitation [Unknown]

NARRATIVE: CASE EVENT DATE: 20220330
